FAERS Safety Report 4553169-2 (Version None)
Quarter: 2005Q1

REPORT INFORMATION
  Report Type: 
  Country: None (occurrence: None)
  Receive Date: 20050113
  Receipt Date: 20050106
  Transmission Date: 20050727
  Serious: No
  Sender: FDA-Public Use
  Company Number: 2005AP00060

PATIENT
  Age: 90 Year
  Sex: Male

DRUGS (1)
  1. IRESSA [Suspect]
     Indication: NON-SMALL CELL LUNG CANCER
     Dates: end: 20050105

REACTIONS (3)
  - BLOOD CREATINE INCREASED [None]
  - RASH [None]
  - RENAL IMPAIRMENT [None]
